FAERS Safety Report 8251721-4 (Version None)
Quarter: 2012Q1

REPORT INFORMATION
  Report Type: 
  Country: None (occurrence: None)
  Receive Date: 20120321
  Receipt Date: 20110808
  Transmission Date: 20120608
  Serious: Yes (Hospitalization, Other)
  Sender: FDA-Public Use
  Company Number: PHEH2011US00989

PATIENT
  Age: 83 Year
  Sex: Male

DRUGS (10)
  1. FISH OIL (FISH OIL) [Concomitant]
  2. VALTURNA [Suspect]
     Dosage: 1 DF (150/160MG),QD
  3. DIURETICS (NO INGREDIENTS/SUBSTANCES) [Suspect]
  4. AMLODIPINE BESYLATE [Concomitant]
  5. CALCIUM D (CALCIUM, COLECALCIFEROL) [Concomitant]
  6. PROSTATE HEALTH VITAMIN (PROSTATE HEALTH VITAMIN) [Concomitant]
  7. ASCORBIC ACID [Concomitant]
  8. NOSE DROPS (NOSE DROPS) [Concomitant]
  9. GLUCOSAMINE (GLUCOSAMINE) [Concomitant]
  10. FOLIC ACID [Concomitant]

REACTIONS (3)
  - BLOOD PRESSURE INCREASED [None]
  - GOUT [None]
  - HEART RATE DECREASED [None]
